FAERS Safety Report 15838829 (Version 2)
Quarter: 2019Q2

REPORT INFORMATION
  Report Type: Spontaneous
  Country: US (occurrence: US)
  Receive Date: 20190117
  Receipt Date: 20190403
  Transmission Date: 20190711
  Serious: Yes (Hospitalization)
  Sender: FDA-Public Use
  Company Number: US-BAYER-2019-014023

PATIENT
  Age: 73 Year
  Sex: Male

DRUGS (2)
  1. BETASERON [Suspect]
     Active Substance: INTERFERON BETA-1B
     Indication: MULTIPLE SCLEROSIS
     Dosage: 0.25 MG
     Route: 058
  2. BETASERON [Suspect]
     Active Substance: INTERFERON BETA-1B
     Indication: MULTIPLE SCLEROSIS
     Dosage: 0.3 MG

REACTIONS (8)
  - Urinary tract infection [None]
  - Fall [None]
  - Influenza like illness [None]
  - Infection [None]
  - Influenza [None]
  - Urinary tract infection [None]
  - Gastrointestinal viral infection [None]
  - Fall [None]

NARRATIVE: CASE EVENT DATE: 201804
